FAERS Safety Report 8051868-1 (Version None)
Quarter: 2012Q1

REPORT INFORMATION
  Report Type: 
  Country: None (occurrence: None)
  Receive Date: 20120110
  Receipt Date: 20120103
  Transmission Date: 20120608
  Serious: Yes (Hospitalization)
  Sender: FDA-Public Use
  Company Number: 08-AUR-06227

PATIENT
  Age: 42 Year
  Sex: Female

DRUGS (3)
  1. QUETIAPINE FUMARATE [Suspect]
     Indication: BIPOLAR DISORDER
     Dosage: (800 MG)
  2. CITALOPRAM HYDROBROMIDE [Suspect]
     Indication: BIPOLAR DISORDER
     Dosage: (40 MG)
  3. ALPRAZOLAM [Concomitant]

REACTIONS (10)
  - AGITATION [None]
  - HYPERREFLEXIA [None]
  - DRUG INTERACTION [None]
  - MUSCLE RIGIDITY [None]
  - SEROTONIN SYNDROME [None]
  - DISORIENTATION [None]
  - IMPAIRED DRIVING ABILITY [None]
  - DELIRIUM [None]
  - URINARY INCONTINENCE [None]
  - DEHYDRATION [None]
